FAERS Safety Report 15497857 (Version 1)
Quarter: 2018Q4

REPORT INFORMATION
  Report Type: Spontaneous
  Country: US (occurrence: US)
  Receive Date: 20181015
  Receipt Date: 20181015
  Transmission Date: 20190205
  Serious: No
  Sender: FDA-Public Use
  Company Number: US-PFIZER INC-2018404466

PATIENT
  Age: 80 Year
  Sex: Female

DRUGS (7)
  1. CEFPODOXIME PROXETIL. [Suspect]
     Active Substance: CEFPODOXIME PROXETIL
     Dosage: UNK
  2. MORPHINE SULFATE. [Suspect]
     Active Substance: MORPHINE SULFATE
     Dosage: UNK
  3. ERYTHROMYCIN. [Suspect]
     Active Substance: ERYTHROMYCIN
     Dosage: UNK
  4. MEPERIDINE HCL [Suspect]
     Active Substance: MEPERIDINE HYDROCHLORIDE
     Dosage: UNK
  5. LEVOFLOXACIN. [Suspect]
     Active Substance: LEVOFLOXACIN
     Dosage: UNK
  6. VANCOMYCIN HCL [Suspect]
     Active Substance: VANCOMYCIN HYDROCHLORIDE
     Dosage: UNK
  7. METOCLOPRAMIDE HCL [Suspect]
     Active Substance: METOCLOPRAMIDE HYDROCHLORIDE
     Dosage: UNK

REACTIONS (1)
  - Drug hypersensitivity [Unknown]
